FAERS Safety Report 5943620-5 (Version None)
Quarter: 2008Q4

REPORT INFORMATION
  Report Type: 
  Country: None (occurrence: None)
  Receive Date: 20081106
  Receipt Date: 20081029
  Transmission Date: 20090506
  Serious: Yes (Life-Threatening, Hospitalization)
  Sender: FDA-Public Use
  Company Number: FR-WYE-H05474608

PATIENT
  Age: 79 Year
  Sex: Female

DRUGS (9)
  1. INIPOMP [Interacting]
     Indication: GASTRIC HAEMORRHAGE
     Route: 042
     Dates: start: 20070430, end: 20070505
  2. INIPOMP [Interacting]
     Route: 042
     Dates: start: 20070506, end: 20070510
  3. INIPOMP [Interacting]
     Route: 042
     Dates: start: 20070515, end: 20070529
  4. PANTOPRAZOLE SODIUM [Suspect]
     Indication: GASTRIC HAEMORRHAGE
     Route: 048
     Dates: start: 20070511, end: 20070514
  5. PANTOPRAZOLE SODIUM [Suspect]
     Route: 048
     Dates: start: 20070530
  6. LACTULOSE [Concomitant]
     Indication: CONSTIPATION
     Dosage: UNKNOWN
     Route: 065
  7. CHOLESTYRAMINE [Interacting]
     Indication: PRURITUS
     Dosage: UNKNOWN
     Route: 065
  8. OCTREOTIDE ACETATE [Interacting]
     Indication: GASTRIC HAEMORRHAGE
     Route: 065
     Dates: start: 20070430, end: 20070505
  9. OCTREOTIDE ACETATE [Interacting]
     Route: 042
     Dates: start: 20070506, end: 20070514

REACTIONS (7)
  - ASPIRATION BRONCHIAL [None]
  - ASPIRATION TRACHEAL [None]
  - BEZOAR [None]
  - CONSTIPATION [None]
  - DRUG INTERACTION [None]
  - GASTROINTESTINAL HAEMORRHAGE [None]
  - RESPIRATORY DISTRESS [None]
